FAERS Safety Report 8985600 (Version 1)
Quarter: 2012Q4

REPORT INFORMATION
  Report Type: 
  Country: SE (occurrence: SE)
  Receive Date: 20121226
  Receipt Date: 20121226
  Transmission Date: 20130627
  Serious: Yes (Hospitalization, Other)
  Sender: FDA-Public Use
  Company Number: SE-PFIZER INC-2012320912

PATIENT
  Age: 76 Year
  Sex: Female

DRUGS (1)
  1. SALAZOPYRIN [Suspect]
     Dosage: UNK

REACTIONS (5)
  - Rash [Unknown]
  - Pruritus [Unknown]
  - Hypotension [Unknown]
  - Gastroenteritis [Unknown]
  - Chills [Unknown]
